FAERS Safety Report 5597765-2 (Version None)
Quarter: 2007Q4

REPORT INFORMATION
  Report Type: 
  Country: None (occurrence: None)
  Receive Date: 20071221
  Receipt Date: 20071002
  Transmission Date: 20080405
  Serious: No
  Sender: FDA-Public Use
  Company Number: SPV1-2007-04394

PATIENT
  Age: 29 Year
  Sex: Male
  Weight: 79.4 kg

DRUGS (2)
  1. VYVANSE [Suspect]
     Indication: ATTENTION DEFICIT/HYPERACTIVITY DISORDER
     Dosage: 50 MG, EVERY OTHER DAY, ORAL ; 70 MG, EVERY OTHER DAY, ORAL
     Route: 048
     Dates: start: 20070922
  2. VYVANSE [Suspect]
     Indication: ATTENTION DEFICIT/HYPERACTIVITY DISORDER
     Dosage: 50 MG, EVERY OTHER DAY, ORAL ; 70 MG, EVERY OTHER DAY, ORAL
     Route: 048
     Dates: start: 20070922

REACTIONS (3)
  - NIGHT SWEATS [None]
  - OFF LABEL USE [None]
  - PYREXIA [None]
